FAERS Safety Report 11728202 (Version 1)
Quarter: 2015Q4

REPORT INFORMATION
  Report Type: Spontaneous
  Country: US (occurrence: US)
  Receive Date: 20151110
  Receipt Date: 20151110
  Transmission Date: 20160304
  Serious: No
  Sender: FDA-Public Use
  Company Number: US-ELI_LILLY_AND_COMPANY-US201111009080

PATIENT
  Age: 86 Year
  Sex: Female

DRUGS (1)
  1. FORTEO [Suspect]
     Active Substance: TERIPARATIDE
     Indication: OSTEOPOROSIS
     Dosage: 20 UG, QD

REACTIONS (8)
  - Fall [Recovered/Resolved]
  - Contusion [Recovering/Resolving]
  - Foot fracture [Recovered/Resolved]
  - Pain in extremity [Recovered/Resolved]
  - Limb injury [Unknown]
  - Bite [Unknown]
  - Mouth injury [Unknown]
  - Fall [Unknown]

NARRATIVE: CASE EVENT DATE: 201110
